FAERS Safety Report 12831080 (Version 2)
Quarter: 2017Q1

REPORT INFORMATION
  Report Type: Spontaneous
  Country: US (occurrence: US)
  Receive Date: 20161007
  Receipt Date: 20170111
  Transmission Date: 20170428
  Serious: No
  Sender: FDA-Public Use
  Company Number: US-ARBOR PHARMACEUTICALS, LLC-US-2016ARB000464

PATIENT

DRUGS (4)
  1. EVEKEO [Suspect]
     Active Substance: AMPHETAMINE SULFATE
     Dosage: 10 MG, QD, TAPERS DOWN IN THE SUMMER
     Route: 048
     Dates: start: 2016
  2. EVEKEO [Suspect]
     Active Substance: AMPHETAMINE SULFATE
     Dosage: INCREASED TO 20-40 MG QD
     Route: 048
     Dates: start: 2016
  3. GUANFACINE. [Concomitant]
     Active Substance: GUANFACINE
     Indication: EXECUTIVE DYSFUNCTION
     Dosage: 3 MG, QD AT NIGHT
     Route: 048
  4. EVEKEO [Suspect]
     Active Substance: AMPHETAMINE SULFATE
     Indication: ATTENTION DEFICIT/HYPERACTIVITY DISORDER
     Dosage: 5 MG, QD
     Route: 048
     Dates: start: 201601

REACTIONS (3)
  - Unevaluable event [Unknown]
  - Weight increased [Unknown]
  - Thinking abnormal [Unknown]

NARRATIVE: CASE EVENT DATE: 2016
